FAERS Safety Report 9562050 (Version 1)
Quarter: 2013Q3

REPORT INFORMATION
  Report Type: Spontaneous
  Country: FR (occurrence: FR)
  Receive Date: 20130927
  Receipt Date: 20130927
  Transmission Date: 20140515
  Serious: Yes (Death)
  Sender: FDA-Public Use
  Company Number: FR-PFIZER INC-2013275217

PATIENT
  Age: 53 Year
  Sex: Female

DRUGS (1)
  1. CRIZOTINIB [Suspect]
     Dosage: UNK
     Dates: start: 20121213, end: 20130308

REACTIONS (3)
  - Death [Fatal]
  - Disease progression [Unknown]
  - Neoplasm malignant [Unknown]
